FAERS Safety Report 7919494-X (Version None)
Quarter: 2011Q4

REPORT INFORMATION
  Report Type: 
  Country: None (occurrence: None)
  Receive Date: 20111117
  Receipt Date: 20111114
  Transmission Date: 20120403
  Serious: No
  Sender: FDA-Public Use
  Company Number: US-PFIZER INC-2011279339

PATIENT
  Sex: Female
  Weight: 61.224 kg

DRUGS (3)
  1. VENLAFAXINE HCL [Suspect]
     Indication: INSOMNIA
  2. LEVOTHYROXINE [Concomitant]
     Indication: THYROID DISORDER
     Dosage: 50 UG DAILY
  3. VENLAFAXINE HCL [Suspect]
     Indication: HOT FLUSH
     Dosage: 150 MG DAILY
     Dates: start: 20110601, end: 20110701

REACTIONS (3)
  - MENTAL DISORDER [None]
  - MALAISE [None]
  - DRUG INEFFECTIVE [None]
